FAERS Safety Report 5559341-7 (Version None)
Quarter: 2007Q4

REPORT INFORMATION
  Report Type: 
  Country: None (occurrence: None)
  Receive Date: 20071214
  Receipt Date: 20070926
  Transmission Date: 20080405
  Serious: No
  Sender: FDA-Public Use
  Company Number: US-ABBOTT-07P-163-0419161-00

PATIENT
  Sex: Female

DRUGS (1)
  1. HUMIRA [Suspect]
     Indication: PSORIATIC ARTHROPATHY
     Route: 058

REACTIONS (4)
  - ASTHENIA [None]
  - NASOPHARYNGITIS [None]
  - VISUAL ACUITY REDUCED [None]
  - WHITE BLOOD CELL COUNT DECREASED [None]
